FAERS Safety Report 8348291-9 (Version None)
Quarter: 2012Q2

REPORT INFORMATION
  Report Type: 
  Country: None (occurrence: None)
  Receive Date: 20120509
  Receipt Date: 20120502
  Transmission Date: 20120825
  Serious: Yes (Other)
  Sender: FDA-Public Use
  Company Number: US-ABBOTT-12P-163-0932987-00

PATIENT
  Sex: Male
  Weight: 72.64 kg

DRUGS (17)
  1. LISINOPRIL [Concomitant]
     Indication: BLOOD CREATININE INCREASED
  2. HUMIRA [Suspect]
     Indication: ANKYLOSING SPONDYLITIS
     Dates: start: 20080101, end: 20080101
  3. HUMIRA [Suspect]
     Dates: start: 20080101, end: 20110701
  4. SIMVASTATIN [Concomitant]
     Indication: HYPERLIPIDAEMIA
  5. LISINOPRIL [Concomitant]
     Indication: HYPERTENSION
  6. FLEXERIL [Concomitant]
     Indication: ANKYLOSING SPONDYLITIS
  7. ASPIRIN [Concomitant]
     Indication: ATHEROSCLEROSIS PROPHYLAXIS
  8. MELOXICAM [Concomitant]
     Indication: ANKYLOSING SPONDYLITIS
  9. METHOTREXATE [Suspect]
     Dates: start: 20070101, end: 20070101
  10. METHOTREXATE [Suspect]
     Dates: start: 20110701
  11. WELLBUTRIN [Concomitant]
     Indication: ANXIETY
  12. PREDNISONE TAB [Concomitant]
     Indication: ANKYLOSING SPONDYLITIS
  13. NIACIN [Concomitant]
     Indication: HYPERLIPIDAEMIA
  14. HUMIRA [Suspect]
     Dates: start: 20110701
  15. METHOTREXATE [Suspect]
     Indication: ANKYLOSING SPONDYLITIS
     Dates: start: 20000101, end: 20000101
  16. REMERON [Concomitant]
     Indication: SLEEP DISORDER THERAPY
  17. FOLIC ACID [Concomitant]
     Indication: VITAMIN SUPPLEMENTATION

REACTIONS (6)
  - UNEVALUABLE EVENT [None]
  - ABDOMINAL PAIN [None]
  - MUSCLE SPASMS [None]
  - RETCHING [None]
  - VOMITING [None]
  - STOMATITIS [None]
